FAERS Safety Report 19977698 (Version 1)
Quarter: 2021Q4

REPORT INFORMATION
  Report Type: Spontaneous
  Country: US (occurrence: US)
  Receive Date: 20211019
  Receipt Date: 20211019
  Transmission Date: 20220303
  Serious: No
  Sender: FDA-Public Use
  Company Number: None

PATIENT
  Sex: Female

DRUGS (1)
  1. PROLIA [Suspect]
     Active Substance: DENOSUMAB
     Indication: Product used for unknown indication
     Dosage: ?          OTHER FREQUENCY:EVERY 6 MONTHS;
     Route: 058
     Dates: start: 202105

REACTIONS (3)
  - Intracranial aneurysm [None]
  - Cerebrovascular accident [None]
  - Dehydration [None]
